FAERS Safety Report 13855538 (Version 1)
Quarter: 2017Q3

REPORT INFORMATION
  Report Type: Spontaneous
  Country: US (occurrence: US)
  Receive Date: 20170810
  Receipt Date: 20170810
  Transmission Date: 20171127
  Serious: No
  Sender: FDA-Public Use
  Company Number: US-PFIZER INC-2017339515

PATIENT
  Age: 39 Year
  Sex: Female

DRUGS (1)
  1. KERYDIN [Suspect]
     Active Substance: TAVABOROLE
     Dosage: 4 ML, UNK
     Route: 061

REACTIONS (4)
  - Rash [Unknown]
  - Peripheral swelling [Unknown]
  - Pruritus [Unknown]
  - Pain in extremity [Unknown]
